FAERS Safety Report 7363762-X (Version None)
Quarter: 2011Q1

REPORT INFORMATION
  Report Type: 
  Country: None (occurrence: None)
  Receive Date: 20110321
  Receipt Date: 20110317
  Transmission Date: 20110831
  Serious: Yes (Life-Threatening, Disabling)
  Sender: FDA-Public Use
  Company Number: US-B.I. PHARMACEUTICALS,INC./RIDGEFIELD-2011-BP-02619BP

PATIENT
  Age: 66 Year
  Sex: Male
  Weight: 73.94 kg

DRUGS (1)
  1. PRADAXA [Suspect]
     Indication: ATRIAL FIBRILLATION
     Dosage: 300 MG
     Route: 048
     Dates: start: 20101210, end: 20101210

REACTIONS (5)
  - CEREBROVASCULAR ACCIDENT [None]
  - EMBOLISM ARTERIAL [None]
  - BLINDNESS UNILATERAL [None]
  - HAEMORRHAGE [None]
  - RETINAL ARTERY THROMBOSIS [None]
